FAERS Safety Report 13370582 (Version 2)
Quarter: 2017Q2

REPORT INFORMATION
  Report Type: Spontaneous
  Country: US (occurrence: US)
  Receive Date: 20170324
  Receipt Date: 20170420
  Transmission Date: 20170830
  Serious: No
  Sender: FDA-Public Use
  Company Number: US-BAYER-2017-056907

PATIENT
  Age: 63 Year
  Sex: Female
  Weight: 87.98 kg

DRUGS (2)
  1. GADAVIST [Suspect]
     Active Substance: GADOBUTROL
     Indication: NUCLEAR MAGNETIC RESONANCE IMAGING BRAIN
     Dosage: 8.8 ML, ONCE
     Dates: start: 20170208
  2. GADAVIST [Suspect]
     Active Substance: GADOBUTROL
     Indication: SCAN

REACTIONS (3)
  - Throat irritation [Recovered/Resolved]
  - Paranasal sinus hypersecretion [Recovered/Resolved]
  - Cough [Recovered/Resolved]

NARRATIVE: CASE EVENT DATE: 20170208
